FAERS Safety Report 6845352-8 (Version None)
Quarter: 2010Q3

REPORT INFORMATION
  Report Type: 
  Country: None (occurrence: None)
  Receive Date: 20100715
  Receipt Date: 20070818
  Transmission Date: 20110219
  Serious: No
  Sender: FDA-Public Use
  Company Number: US-PFIZER INC-2007070013

PATIENT
  Sex: Female
  Weight: 62.6 kg

DRUGS (6)
  1. CHANTIX [Suspect]
     Indication: SMOKING CESSATION THERAPY
     Dates: start: 20070816
  2. FENTANYL [Concomitant]
     Indication: BONE DISORDER
  3. CYMBALTA [Concomitant]
     Indication: DEPRESSION
  4. TRAZODONE HYDROCHLORIDE [Concomitant]
     Indication: SLEEP DISORDER
  5. DILAUDID [Concomitant]
     Indication: BREAKTHROUGH PAIN
  6. SOMA [Concomitant]

REACTIONS (2)
  - FATIGUE [None]
  - MYALGIA [None]
